FAERS Safety Report 14751384 (Version 1)
Quarter: 2018Q2

REPORT INFORMATION
  Report Type: Spontaneous
  Country: US (occurrence: US)
  Receive Date: 20180412
  Receipt Date: 20180412
  Transmission Date: 20180711
  Serious: No
  Sender: FDA-Public Use
  Company Number: US-TEVA-2018-US-878657

PATIENT
  Sex: Female

DRUGS (1)
  1. TRAZODONE [Suspect]
     Active Substance: TRAZODONE HYDROCHLORIDE
     Indication: INSOMNIA
     Dosage: FOR 5-8 YEARS
     Route: 065

REACTIONS (3)
  - Eye colour change [Unknown]
  - Corneal scar [Unknown]
  - Visual impairment [Unknown]

NARRATIVE: CASE EVENT DATE: 20180125
